FAERS Safety Report 14733288 (Version 1)
Quarter: 2018Q2

REPORT INFORMATION
  Report Type: Spontaneous
  Country: FR (occurrence: FR)
  Receive Date: 20180409
  Receipt Date: 20180409
  Transmission Date: 20180711
  Serious: Yes (Hospitalization)
  Sender: FDA-Public Use
  Company Number: FR-AUROBINDO-AUR-APL-2018-018574

PATIENT
  Age: 74 Year
  Sex: Female
  Weight: 91.4 kg

DRUGS (4)
  1. AMOXICILLIN. [Suspect]
     Active Substance: AMOXICILLIN
     Indication: BACTERAEMIA
     Dosage: 300 MILLIGRAM, ONCE A DAY
     Route: 042
     Dates: start: 20180210, end: 20180213
  2. GENTAMICINE [Suspect]
     Active Substance: GENTAMICIN
     Indication: BACTERAEMIA
     Dosage: 12 GRAM, ONCE A DAY
     Route: 042
     Dates: start: 20180210, end: 20180213
  3. ASPIRINE [Concomitant]
     Active Substance: ASPIRIN
     Indication: PRODUCT USED FOR UNKNOWN INDICATION
     Dosage: UNK
     Route: 065
  4. VOLTARENE [Concomitant]
     Indication: PRODUCT USED FOR UNKNOWN INDICATION
     Dosage: UNK
     Route: 065

REACTIONS (2)
  - Renal tubular necrosis [Recovered/Resolved]
  - Acute kidney injury [Recovered/Resolved]

NARRATIVE: CASE EVENT DATE: 20180213
